FAERS Safety Report 18691888 (Version 4)
Quarter: 2021Q1

REPORT INFORMATION
  Report Type: Spontaneous
  Country: CA (occurrence: CA)
  Receive Date: 20210102
  Receipt Date: 20210329
  Transmission Date: 20210419
  Serious: Yes (Other)
  Sender: FDA-Public Use
  Company Number: CA-CELLTRION INC.-2020CA033045

PATIENT

DRUGS (6)
  1. INFLECTRA [Suspect]
     Active Substance: INFLIXIMAB-DYYB
     Dosage: 800 MG, AT WEEK 2, THEN EVERY 4 WEEKS
     Route: 042
     Dates: start: 20210121
  2. INFLECTRA [Suspect]
     Active Substance: INFLIXIMAB-DYYB
     Dosage: 800 MG, AT WEEK 2, THEN EVERY 4 WEEKS
     Route: 042
     Dates: start: 20201224
  3. INFLECTRA [Suspect]
     Active Substance: INFLIXIMAB-DYYB
     Dosage: 800 MG, AT WEEK 2, THEN EVERY 4 WEEKS
     Route: 042
     Dates: start: 20210318
  4. INFLECTRA [Suspect]
     Active Substance: INFLIXIMAB-DYYB
     Indication: COLITIS ULCERATIVE
     Dosage: 800 MG, UNK (FIRST DOSE IN THE HOSPITAL)
     Route: 042
     Dates: start: 202011
  5. INFLECTRA [Suspect]
     Active Substance: INFLIXIMAB-DYYB
     Dosage: 800 MG, WEEK 2, THEN EVERY 4 WEEKS
     Route: 042
     Dates: start: 20201126
  6. INFLECTRA [Suspect]
     Active Substance: INFLIXIMAB-DYYB
     Dosage: 800 MG, AT WEEK 2, THEN EVERY 4 WEEKS
     Route: 042
     Dates: start: 20210218

REACTIONS (4)
  - Off label use [Unknown]
  - Condition aggravated [Not Recovered/Not Resolved]
  - Weight increased [Not Recovered/Not Resolved]
  - Product use issue [Unknown]

NARRATIVE: CASE EVENT DATE: 2020
